FAERS Safety Report 7529062-X (Version None)
Quarter: 2011Q2

REPORT INFORMATION
  Report Type: 
  Country: None (occurrence: None)
  Receive Date: 20110520
  Receipt Date: 20110323
  Transmission Date: 20111010
  Serious: No
  Sender: FDA-Public Use
  Company Number: 029832

PATIENT
  Sex: Female
  Weight: 59 kg

DRUGS (2)
  1. LACOSAMIDE [Suspect]
     Indication: CONVULSION
     Dosage: SEE IMAGE
     Route: 048
     Dates: start: 20110201
  2. LACOSAMIDE [Suspect]
     Indication: CONVULSION
     Dosage: SEE IMAGE
     Route: 048
     Dates: start: 20100101, end: 20110201

REACTIONS (5)
  - AMENORRHOEA [None]
  - FATIGUE [None]
  - WEIGHT INCREASED [None]
  - TREATMENT NONCOMPLIANCE [None]
  - CONVULSION [None]
